FAERS Safety Report 19888627 (Version 1)
Quarter: 2021Q3

REPORT INFORMATION
  Report Type: Spontaneous
  Country: US (occurrence: US)
  Receive Date: 20210927
  Receipt Date: 20210927
  Transmission Date: 20211014
  Serious: Yes (Disabling)
  Sender: FDA-Public Use
  Company Number: None

PATIENT
  Age: 52 Year
  Sex: Female
  Weight: 93.6 kg

DRUGS (1)
  1. CIPROFLOXACIN. [Suspect]
     Active Substance: CIPROFLOXACIN
     Indication: URINARY TRACT INFECTION
     Dosage: ?          QUANTITY:1 TABLET(S);?
     Route: 048
     Dates: start: 20210608, end: 20210722

REACTIONS (6)
  - Myalgia [None]
  - Arthralgia [None]
  - Paraesthesia [None]
  - Burning sensation [None]
  - Sleep disorder [None]
  - Joint noise [None]

NARRATIVE: CASE EVENT DATE: 20210722
